FAERS Safety Report 5051514-5 (Version None)
Quarter: 2006Q3

REPORT INFORMATION
  Report Type: 
  Country: None (occurrence: None)
  Receive Date: 20060711
  Receipt Date: 20060623
  Transmission Date: 20061208
  Serious: Yes (Hospitalization)
  Sender: FDA-Public Use
  Company Number: ABILS-06-0281

PATIENT
  Age: 66 Year
  Sex: Male
  Weight: 115.2136 kg

DRUGS (13)
  1. ABRAXANE [Suspect]
     Indication: BREAST CANCER METASTATIC
     Dosage: LAST DOSE 28-APR-2006 (175 MG/M2, EVERY 3 WEEKS), INTRAVENOUS DRIP
     Route: 041
     Dates: start: 20060407
  2. PROCRIT [Suspect]
     Indication: ANAEMIA
     Dosage: (80000 IU, WEEKLY), SUBCUTANEOUS
     Route: 058
     Dates: start: 20060417, end: 20060528
  3. CYTOXAN [Suspect]
     Indication: BREAST CANCER METASTATIC
     Dosage: LAST DOSE 25-APR-2006 (500 MG/M2, 1 IN 3 WEEKS), INTRAVENOUS DRIP
     Route: 041
     Dates: start: 20060405
  4. DOXORUBICIN HCL [Suspect]
     Indication: BREAST CANCER METASTATIC
     Dosage: LAST DOSE 25-APR-2006 (50 MG/M2, EVERY 3 WEEKS), INTRAVENOUS DRIP
     Route: 041
     Dates: start: 20060405
  5. NEUPOGEN [Suspect]
     Indication: NEUTROPENIA
     Dosage: 480 MG, SUBCUTANEOUS
     Route: 058
     Dates: start: 20060503, end: 20060508
  6. ASPIRIN [Concomitant]
  7. LIPITOR [Concomitant]
  8. LORTAB [Concomitant]
  9. FEMARA [Concomitant]
  10. ZESTRIL [Concomitant]
  11. NEXIUM [Concomitant]
  12. VERAPAMIL [Concomitant]
  13. GEMFIBROZIL [Concomitant]

REACTIONS (9)
  - CARDIAC FAILURE CONGESTIVE [None]
  - CHEST PAIN [None]
  - DYSPNOEA [None]
  - NEUTROPENIA [None]
  - PALPITATIONS [None]
  - PULMONARY CONGESTION [None]
  - SINUS TACHYCARDIA [None]
  - SUPRAVENTRICULAR TACHYCARDIA [None]
  - THROMBOCYTOPENIA [None]
